FAERS Safety Report 4425704-6 (Version None)
Quarter: 2004Q3

REPORT INFORMATION
  Report Type: 
  Country: None (occurrence: None)
  Receive Date: 20040810
  Receipt Date: 20040729
  Transmission Date: 20050211
  Serious: Yes (Hospitalization)
  Sender: FDA-Public Use
  Company Number: 177424

PATIENT
  Sex: Female

DRUGS (1)
  1. AVONEX [Suspect]
     Indication: MULTIPLE SCLEROSIS
     Dosage: 30 MCG QW IM
     Route: 030
     Dates: start: 19970101

REACTIONS (4)
  - CHOLELITHIASIS [None]
  - GASTROINTESTINAL CARCINOMA [None]
  - OVARIAN CYST [None]
  - UTERINE DISORDER [None]
